FAERS Safety Report 19997027 (Version 1)
Quarter: 2021Q4

REPORT INFORMATION
  Report Type: Spontaneous
  Country: NO (occurrence: NO)
  Receive Date: 20211026
  Receipt Date: 20211026
  Transmission Date: 20220303
  Serious: Yes (Hospitalization, Other)
  Sender: FDA-Public Use
  Company Number: NO-TAKEDA-2021TEU008706

PATIENT
  Age: 39 Year
  Sex: Male
  Weight: 113 kg

DRUGS (1)
  1. PANTOPRAZOLE SODIUM [Suspect]
     Active Substance: PANTOPRAZOLE SODIUM
     Indication: Dyspepsia
     Dosage: 40 MILLIGRAM, QD
     Route: 048
     Dates: start: 2015

REACTIONS (6)
  - Hyperhidrosis [Recovered/Resolved]
  - Oesophageal spasm [Recovered/Resolved]
  - Malaise [Recovered/Resolved]
  - Chest pain [Recovered/Resolved]
  - Pain [Recovered/Resolved]
  - Pyrexia [Recovered/Resolved]

NARRATIVE: CASE EVENT DATE: 20160101
